FAERS Safety Report 8977641 (Version 1)
Quarter: 2012Q4

REPORT INFORMATION
  Report Type: 
  Country: FR (occurrence: FR)
  Receive Date: 20121220
  Receipt Date: 20121220
  Transmission Date: 20130627
  Serious: Yes (Hospitalization)
  Sender: FDA-Public Use
  Company Number: FR-GLAXOSMITHKLINE-B0852585A

PATIENT
  Age: 82 Year
  Sex: Female

DRUGS (5)
  1. DEROXAT [Suspect]
     Indication: DEPRESSION
     Dosage: .5UNIT Per day
     Route: 048
  2. COUMADINE [Suspect]
     Indication: PULMONARY EMBOLISM
     Dosage: 3MG Per day
     Route: 065
     Dates: start: 20120625, end: 20120830
  3. ZYPREXA [Concomitant]
     Indication: DEPRESSION
     Route: 065
  4. PARKINANE [Concomitant]
     Route: 065
  5. TRANSIPEG [Concomitant]
     Route: 065

REACTIONS (4)
  - Subdural haematoma [Not Recovered/Not Resolved]
  - Skin haemorrhage [Recovered/Resolved]
  - Fall [Unknown]
  - Wound [Recovered/Resolved]
